FAERS Safety Report 9696300 (Version 1)
Quarter: 2013Q4

REPORT INFORMATION
  Report Type: Spontaneous
  Country: US (occurrence: US)
  Receive Date: 20131119
  Receipt Date: 20131119
  Transmission Date: 20140711
  Serious: Yes (Other)
  Sender: FDA-Public Use
  Company Number: US-JNJFOC-20131106954

PATIENT
  Age: 6 Decade
  Sex: Female

DRUGS (4)
  1. HALOPERIDOL [Suspect]
     Indication: SUICIDAL IDEATION
     Route: 065
  2. HALOPERIDOL [Suspect]
     Indication: PSYCHOTIC DISORDER
     Route: 065
  3. THIORIDAZINE [Suspect]
     Indication: SUICIDAL IDEATION
     Route: 065
  4. THIORIDAZINE [Suspect]
     Indication: PSYCHOTIC DISORDER
     Route: 065

REACTIONS (3)
  - Tardive dyskinesia [Recovered/Resolved]
  - Dystonia [Recovered/Resolved]
  - Respiratory disorder [Recovered/Resolved]
